FAERS Safety Report 9110449 (Version 1)
Quarter: 2013Q1

REPORT INFORMATION
  Report Type: Spontaneous
  Country: US (occurrence: US)
  Receive Date: 20130219
  Receipt Date: 20130219
  Transmission Date: 20140127
  Serious: Yes (Other)
  Sender: FDA-Public Use
  Company Number: US-BRACCO-008110

PATIENT
  Sex: Male

DRUGS (2)
  1. ISOVUE 370 [Suspect]
     Indication: COMPUTERISED TOMOGRAM
     Route: 042
     Dates: start: 20120527, end: 20120527
  2. ISOVUE 370 [Suspect]
     Indication: LUNG INFILTRATION
     Route: 042
     Dates: start: 20120527, end: 20120527

REACTIONS (3)
  - Respiratory distress [Unknown]
  - Dyspnoea [Unknown]
  - Cough [Unknown]
